FAERS Safety Report 7206452-6 (Version None)
Quarter: 2010Q4

REPORT INFORMATION
  Report Type: 
  Country: None (occurrence: None)
  Receive Date: 20101221
  Receipt Date: 20101210
  Transmission Date: 20110411
  Serious: Yes (Other)
  Sender: FDA-Public Use
  Company Number: NO-GDP-10409206

PATIENT
  Age: 38 Year
  Sex: Female

DRUGS (1)
  1. EPIDUO (ADAPALEN) (BENZOYL PEROXIDE) GEL 0.19/2.5% 12/20/ [Suspect]
     Indication: ACNE
     Dosage: 1 DF QD, DRUG APPLIED ONLY ONCE; TOPICAL
     Route: 061
     Dates: start: 20101022, end: 20101022

REACTIONS (1)
  - DRUG HYPERSENSITIVITY [None]
